FAERS Safety Report 5948726-2 (Version None)
Quarter: 2008Q4

REPORT INFORMATION
  Report Type: 
  Country: None (occurrence: None)
  Receive Date: 20081111
  Receipt Date: 20081103
  Transmission Date: 20090506
  Serious: Yes (Death)
  Sender: FDA-Public Use
  Company Number: GB-GENENTECH-240670

PATIENT
  Age: 61 Year
  Sex: Male

DRUGS (1)
  1. MABTHERA [Suspect]
     Indication: AUTOIMMUNE DISORDER
     Dosage: 375 MG/M2, 1/WEEK
     Route: 042

REACTIONS (1)
  - PNEUMOCYSTIS JIROVECI PNEUMONIA [None]
